FAERS Safety Report 22367261 (Version 3)
Quarter: 2024Q1

REPORT INFORMATION
  Report Type: Report from Study
  Country: US (occurrence: US)
  Receive Date: 20230525
  Receipt Date: 20240103
  Transmission Date: 20240409
  Serious: Yes (Hospitalization, Other)
  Sender: FDA-Public Use
  Company Number: US-GILEAD-2023-0629703

PATIENT
  Sex: Male

DRUGS (8)
  1. AMBRISENTAN [Suspect]
     Active Substance: AMBRISENTAN
     Indication: Pulmonary arterial hypertension
     Dosage: 10 MG, QD
     Route: 065
     Dates: start: 20220331
  2. AMBRISENTAN [Suspect]
     Active Substance: AMBRISENTAN
     Indication: Pulmonary hypertension
  3. ELIQUIS [Concomitant]
     Active Substance: APIXABAN
  4. SILDENAFIL [Concomitant]
     Active Substance: SILDENAFIL
  5. AMLODIPINE [Concomitant]
     Active Substance: AMLODIPINE BESYLATE
  6. VIAGRA [Concomitant]
     Active Substance: SILDENAFIL CITRATE
  7. POTASSIUM [Concomitant]
     Active Substance: POTASSIUM
  8. SILDENAFIL CITRATE [Concomitant]
     Active Substance: SILDENAFIL CITRATE

REACTIONS (5)
  - Cerebrovascular accident [Not Recovered/Not Resolved]
  - Blindness [Not Recovered/Not Resolved]
  - Amnesia [Not Recovered/Not Resolved]
  - Oxygen therapy [Unknown]
  - Fatigue [Not Recovered/Not Resolved]
